FAERS Safety Report 7358933-2 (Version None)
Quarter: 2011Q1

REPORT INFORMATION
  Report Type: 
  Country: None (occurrence: None)
  Receive Date: 20110317
  Receipt Date: 20110315
  Transmission Date: 20110831
  Serious: Yes (Hospitalization)
  Sender: FDA-Public Use
  Company Number: US-BRISTOL-MYERS SQUIBB COMPANY-15609670

PATIENT
  Age: 43 Year
  Sex: Female

DRUGS (16)
  1. AMBIEN [Concomitant]
     Dates: start: 20110124
  2. HYDROCHLOROTHIAZIDE [Concomitant]
     Dates: start: 20101116
  3. CARBOPLATIN [Suspect]
     Indication: BREAST CANCER
     Dosage: MOST RECENT DOSE ON 25FEB2011.
     Route: 042
     Dates: start: 20101130, end: 20110225
  4. SYNTHROID [Concomitant]
     Dates: start: 20060101
  5. BLINDED: PLACEBO [Suspect]
     Indication: BREAST CANCER
     Route: 048
     Dates: start: 20101130, end: 20110228
  6. FLUCONAZOLE [Concomitant]
     Dates: start: 20110220
  7. LEXAPRO [Concomitant]
     Dates: start: 20080101
  8. COLACE [Concomitant]
     Dates: start: 20101122
  9. BLINDED: VORINOSTAT [Suspect]
     Indication: BREAST CANCER
     Dosage: MOST RECENT DOSE 28FEB2011.
     Route: 048
     Dates: start: 20101130, end: 20110228
  10. ABRAXANE [Suspect]
     Indication: BREAST CANCER
     Dosage: MOST RECENT DOSE ON 25FEB2011.
     Dates: start: 20101130
  11. SENOKOT [Concomitant]
     Dates: start: 20110107
  12. DOXYCYCLINE [Concomitant]
     Dates: start: 20110220
  13. LORAZEPAM [Concomitant]
     Dates: start: 20101130
  14. NEUPOGEN [Concomitant]
     Dates: start: 20101225
  15. DEXAMETHASONE [Concomitant]
     Dates: start: 20101130
  16. PALONOSETRON [Concomitant]
     Dates: start: 20101130

REACTIONS (7)
  - CONSTIPATION [None]
  - DECREASED APPETITE [None]
  - DIZZINESS [None]
  - SYNCOPE [None]
  - ABDOMINAL PAIN [None]
  - NAUSEA [None]
  - VOMITING [None]
